FAERS Safety Report 20654608 (Version 1)
Quarter: 2022Q1

REPORT INFORMATION
  Report Type: Report from Study
  Country: DE (occurrence: DE)
  Receive Date: 20220330
  Receipt Date: 20220330
  Transmission Date: 20220423
  Serious: Yes (Other)
  Sender: FDA-Public Use
  Company Number: DE-JNJFOC-20220345026

PATIENT

DRUGS (4)
  1. DARATUMUMAB [Suspect]
     Active Substance: DARATUMUMAB
     Indication: Plasma cell myeloma
     Route: 042
  2. VELCADE [Suspect]
     Active Substance: BORTEZOMIB
     Indication: Plasma cell myeloma
     Route: 058
  3. DEXAMETHASONE [Suspect]
     Active Substance: DEXAMETHASONE
     Indication: Plasma cell myeloma
     Route: 065
  4. CARFILZOMIB [Suspect]
     Active Substance: CARFILZOMIB
     Indication: Plasma cell myeloma
     Route: 065

REACTIONS (15)
  - Thrombocytopenia [Unknown]
  - Bronchitis [Unknown]
  - Anaemia [Unknown]
  - Neutropenia [Unknown]
  - Pneumonia [Unknown]
  - Lymphopenia [Unknown]
  - Hypertension [Unknown]
  - Fatigue [Unknown]
  - Upper respiratory tract infection [Unknown]
  - Asthenia [Unknown]
  - Dyspnoea [Unknown]
  - Insomnia [Unknown]
  - Acute kidney injury [Unknown]
  - Cataract [Unknown]
  - Alanine aminotransferase increased [Unknown]
